FAERS Safety Report 16400484 (Version 2)
Quarter: 2019Q2

REPORT INFORMATION
  Report Type: Spontaneous
  Country: FR (occurrence: FR)
  Receive Date: 20190606
  Receipt Date: 20190624
  Transmission Date: 20190711
  Serious: Yes (Hospitalization)
  Sender: FDA-Public Use
  Company Number: FR-009507513-1905FRA014260

PATIENT
  Age: 69 Year
  Sex: Male
  Weight: 46.4 kg

DRUGS (4)
  1. TARGOCID [Suspect]
     Active Substance: TEICOPLANIN
     Indication: ABDOMINAL INFECTION
     Dosage: NOT SPECIFIED
     Route: 042
     Dates: start: 20190506
  2. CEFEPIME [Suspect]
     Active Substance: CEFEPIME HYDROCHLORIDE
     Indication: ABDOMINAL INFECTION
     Dosage: NOT SPECIFIED
     Route: 042
     Dates: start: 20190502
  3. FLAGYL [Suspect]
     Active Substance: METRONIDAZOLE\METRONIDAZOLE HYDROCHLORIDE
     Indication: ABDOMINAL INFECTION
     Dosage: NOT SPECIFIED
     Route: 042
     Dates: start: 20190502
  4. CASPOFUNGIN ACETATE. [Suspect]
     Active Substance: CASPOFUNGIN ACETATE
     Indication: ABDOMINAL INFECTION
     Dosage: NOT SPECIFIED
     Route: 042
     Dates: start: 20190502

REACTIONS (2)
  - Cholestasis [Not Recovered/Not Resolved]
  - Coagulation factor decreased [Not Recovered/Not Resolved]

NARRATIVE: CASE EVENT DATE: 20190507
